FAERS Safety Report 7969763-2 (Version None)
Quarter: 2011Q4

REPORT INFORMATION
  Report Type: 
  Country: None (occurrence: None)
  Receive Date: 20111122
  Receipt Date: 20110824
  Transmission Date: 20120403
  Serious: No
  Sender: FDA-Public Use
  Company Number: PHEH2011US02745

PATIENT
  Age: 62 Year
  Sex: Male
  Weight: 92.1 kg

DRUGS (1)
  1. GILENYA [Suspect]
     Indication: MULTIPLE SCLEROSIS
     Dosage: 1 DF, ORAL
     Route: 048
     Dates: start: 20110822

REACTIONS (8)
  - MIGRAINE [None]
  - FATIGUE [None]
  - CHEST DISCOMFORT [None]
  - VOMITING [None]
  - DIARRHOEA [None]
  - HEAD DISCOMFORT [None]
  - BODY TEMPERATURE DECREASED [None]
  - ASTHENIA [None]
